FAERS Safety Report 5567899-7 (Version None)
Quarter: 2007Q4

REPORT INFORMATION
  Report Type: 
  Country: None (occurrence: None)
  Receive Date: 20071218
  Receipt Date: 20071218
  Transmission Date: 20080405
  Serious: No
  Sender: FDA-Public Use
  Company Number: None

PATIENT
  Age: 9 Year
  Sex: Male
  Weight: 39.9165 kg

DRUGS (10)
  1. LITHIUM SR 450MG [Suspect]
     Dosage: 900MG CR BID PO
     Route: 048
  2. LANSOPRAZOLE [Concomitant]
  3. ARIPIPRAZOLE [Concomitant]
  4. CONCERTA [Concomitant]
  5. ATOMOXETINE [Concomitant]
  6. TRAZODONE HCL [Concomitant]
  7. LORATADINE [Concomitant]
  8. SINGULAIR [Concomitant]
  9. SEREVENT [Concomitant]
  10. ALBUTEROL [Concomitant]

REACTIONS (4)
  - DROOLING [None]
  - NOCTURIA [None]
  - POLYDIPSIA [None]
  - TREMOR [None]
